FAERS Safety Report 4986115-8 (Version None)
Quarter: 2006Q2

REPORT INFORMATION
  Report Type: 
  Country: None (occurrence: None)
  Receive Date: 20060428
  Receipt Date: 20060421
  Transmission Date: 20061013
  Serious: Yes (Death)
  Sender: FDA-Public Use
  Company Number: US-SANOFI-SYNTHELABO-A03200602554

PATIENT
  Sex: Male

DRUGS (4)
  1. PLAVIX [Suspect]
     Indication: DRUG USE FOR UNKNOWN INDICATION
     Dosage: UNK
     Route: 048
  2. ZOCOR [Concomitant]
     Route: 048
  3. FLOMAX [Concomitant]
     Dosage: UNK
     Route: 048
  4. TOPROL-XL [Concomitant]
     Route: 048

REACTIONS (1)
  - DEATH [None]
